FAERS Safety Report 15119732 (Version 2)
Quarter: 2018Q3

REPORT INFORMATION
  Report Type: Spontaneous
  Country: US (occurrence: US)
  Receive Date: 20180709
  Receipt Date: 20180822
  Transmission Date: 20181010
  Serious: No
  Sender: FDA-Public Use
  Company Number: US-TAKEDA-2018TUS021316

PATIENT
  Age: 33 Year
  Sex: Female
  Weight: 83.9 kg

DRUGS (2)
  1. ENTYVIO [Suspect]
     Active Substance: VEDOLIZUMAB
     Indication: COLITIS ULCERATIVE
     Dosage: 300 MG, UNK
     Route: 042
     Dates: start: 201601
  2. ENTYVIO [Suspect]
     Active Substance: VEDOLIZUMAB
     Dosage: 300 MG, Q4WEEKS
     Route: 042
     Dates: start: 20180508

REACTIONS (8)
  - Granulocyte count increased [Unknown]
  - Monocyte count decreased [Unknown]
  - C-reactive protein increased [Unknown]
  - Off label use [Unknown]
  - Blood albumin decreased [Unknown]
  - Hepatitis B surface antibody positive [Unknown]
  - Drug level decreased [Unknown]
  - White blood cell count increased [Unknown]

NARRATIVE: CASE EVENT DATE: 201805
